FAERS Safety Report 19468275 (Version 1)
Quarter: 2021Q2

REPORT INFORMATION
  Report Type: Report from Study
  Country: US (occurrence: US)
  Receive Date: 20210628
  Receipt Date: 20210628
  Transmission Date: 20210717
  Serious: No
  Sender: FDA-Public Use
  Company Number: US-KYOWAKIRIN-2021BKK010806

PATIENT

DRUGS (2)
  1. CRYSVITA [Suspect]
     Active Substance: BUROSUMAB-TWZA
     Indication: PHOSPHORUS METABOLISM DISORDER
     Dosage: STRENGTH 30 AND 10 MG/ML COMBINED TO ACHIEVE DOSE OF 35 MG, EVERY 2 WEEKS
     Route: 058
     Dates: start: 20191209
  2. CRYSVITA [Suspect]
     Active Substance: BUROSUMAB-TWZA
     Indication: PHOSPHORUS METABOLISM DISORDER
     Dosage: STRENGTH 30 AND 10 MG/ML COMBINED TO ACHIEVE DOSE OF 35 MG, EVERY 2 WEEKS
     Route: 058
     Dates: start: 20191209

REACTIONS (2)
  - Product use in unapproved indication [Not Recovered/Not Resolved]
  - Incorrect dose administered [Not Recovered/Not Resolved]

NARRATIVE: CASE EVENT DATE: 20191209
